FAERS Safety Report 25006654 (Version 1)
Quarter: 2025Q1

REPORT INFORMATION
  Report Type: Spontaneous
  Country: US (occurrence: US)
  Receive Date: 20250225
  Receipt Date: 20250225
  Transmission Date: 20250409
  Serious: Yes (Hospitalization, Other)
  Sender: STRIDES
  Company Number: US-STRIDES ARCOLAB LIMITED-2025SP000979

PATIENT
  Age: 28 Year
  Sex: Female

DRUGS (14)
  1. TOPIRAMATE [Suspect]
     Active Substance: TOPIRAMATE
     Indication: Idiopathic generalised epilepsy
     Route: 065
  2. TOPIRAMATE [Suspect]
     Active Substance: TOPIRAMATE
     Route: 065
  3. LEVETIRACETAM [Suspect]
     Active Substance: LEVETIRACETAM
     Indication: Idiopathic generalised epilepsy
     Route: 065
  4. LEVETIRACETAM [Suspect]
     Active Substance: LEVETIRACETAM
     Route: 065
  5. VALPROATE [Suspect]
     Active Substance: VALPROIC ACID
     Indication: Idiopathic generalised epilepsy
     Route: 065
  6. VALPROATE [Suspect]
     Active Substance: VALPROIC ACID
     Route: 065
  7. RUFINAMIDE [Suspect]
     Active Substance: RUFINAMIDE
     Indication: Idiopathic generalised epilepsy
     Route: 065
  8. RUFINAMIDE [Suspect]
     Active Substance: RUFINAMIDE
     Route: 065
  9. LAMOTRIGINE [Suspect]
     Active Substance: LAMOTRIGINE
     Indication: Idiopathic generalised epilepsy
     Route: 065
  10. LAMOTRIGINE [Suspect]
     Active Substance: LAMOTRIGINE
     Route: 065
  11. CLOBAZAM [Suspect]
     Active Substance: CLOBAZAM
     Indication: Idiopathic generalised epilepsy
     Route: 065
  12. CLOBAZAM [Suspect]
     Active Substance: CLOBAZAM
     Route: 065
  13. LACOSAMIDE [Suspect]
     Active Substance: LACOSAMIDE
     Indication: Idiopathic generalised epilepsy
     Route: 065
  14. LACOSAMIDE [Suspect]
     Active Substance: LACOSAMIDE
     Route: 065

REACTIONS (2)
  - Treatment noncompliance [Unknown]
  - Multiple-drug resistance [Unknown]
